FAERS Safety Report 20365073 (Version 1)
Quarter: 2022Q1

REPORT INFORMATION
  Report Type: Spontaneous
  Country: US (occurrence: US)
  Receive Date: 20220122
  Receipt Date: 20220122
  Transmission Date: 20220423
  Serious: Yes (Other)
  Sender: FDA-Public Use
  Company Number: US-AUROBINDO-AUR-APL-2022-001174

PATIENT
  Age: 14 Year
  Sex: Female

DRUGS (11)
  1. LEVETIRACETAM [Suspect]
     Active Substance: LEVETIRACETAM
     Indication: Seizure
     Dosage: UNK
     Route: 065
  2. ZONISAMIDE [Suspect]
     Active Substance: ZONISAMIDE
     Indication: Seizure
     Dosage: UNK
     Route: 065
  3. HYDROCHLOROTHIAZIDE [Suspect]
     Active Substance: HYDROCHLOROTHIAZIDE
     Indication: Fluid retention
     Dosage: UNK
     Route: 065
  4. VALPROIC ACID [Suspect]
     Active Substance: VALPROIC ACID
     Indication: Seizure
     Dosage: UNK
     Route: 065
  5. CARBAMAZEPINE [Suspect]
     Active Substance: CARBAMAZEPINE
     Indication: Seizure
     Dosage: UNK
     Route: 065
  6. LACOSAMIDE [Suspect]
     Active Substance: LACOSAMIDE
     Indication: Seizure
     Dosage: UNK
     Route: 065
  7. .ALPHA.-LIPOIC ACID [Suspect]
     Active Substance: .ALPHA.-LIPOIC ACID
     Indication: Seizure
     Dosage: UNK
     Route: 065
  8. TRIHEPTANOIN [Suspect]
     Active Substance: TRIHEPTANOIN
     Indication: Seizure
     Dosage: UNK
     Route: 065
  9. DIAZOXIDE [Suspect]
     Active Substance: DIAZOXIDE
     Indication: Glucose transporter type 1 deficiency syndrome
     Dosage: 7.6 MILLIGRAM/KILOGRAM, ONCE A DAY
     Route: 065
  10. ACETAZOLAMIDE [Suspect]
     Active Substance: ACETAZOLAMIDE
     Indication: Intracranial pressure increased
     Dosage: UNK
     Route: 065
  11. AMILORIDE [Suspect]
     Active Substance: AMILORIDE
     Indication: Product used for unknown indication
     Dosage: UNK
     Route: 065

REACTIONS (3)
  - Treatment failure [Unknown]
  - Hypokalaemia [Unknown]
  - Renal failure [Unknown]
